FAERS Safety Report 9875728 (Version 2)
Quarter: 2014Q1

REPORT INFORMATION
  Report Type: Spontaneous
  Country: FI (occurrence: None)
  Receive Date: 20140204
  Receipt Date: 20140226
  Transmission Date: 20141002
  Serious: Yes (Other)
  Sender: FDA-Public Use
  Company Number: AUR-APL-2014-01145

PATIENT
  Age: 61 Year
  Sex: Female

DRUGS (6)
  1. AMOXICILLIN (AMOXICILLIN) [Suspect]
     Indication: LUNG DISORDER
     Dosage: (3 DOSAGE FORMS), UNKNOWN
     Dates: start: 2012, end: 2012
  2. CEFALEXIN (CEFALEXIN) [Concomitant]
     Indication: LUNG DISORDER
  3. AMLODIPINE (AMLODIPINE) [Concomitant]
  4. AMILORIDE HCL/HYDROCHLOORHIAZIDE (MODURETIC) [Concomitant]
  5. SALBUTAMOL (SALBUTAMOL) [Concomitant]
  6. FLUTICASONE PROPIONATE (FLUTICASONE PROPIONATE) (FLUTICASONE PROPIONATE) [Concomitant]

REACTIONS (7)
  - Encephalitis viral [None]
  - Skin reaction [None]
  - Erythema [None]
  - Cough [None]
  - Intracranial aneurysm [None]
  - Hyponatraemia [None]
  - White blood cells urine positive [None]
